FAERS Safety Report 18099672 (Version 1)
Quarter: 2020Q3

REPORT INFORMATION
  Report Type: Spontaneous
  Country: US (occurrence: US)
  Receive Date: 20200731
  Receipt Date: 20200731
  Transmission Date: 20201103
  Serious: No
  Sender: FDA-Public Use
  Company Number: US-009507513-2007USA005946

PATIENT
  Age: 40 Year
  Sex: Female

DRUGS (2)
  1. NUVARING [Suspect]
     Active Substance: ETHINYL ESTRADIOL\ETONOGESTREL
  2. NUVARING [Suspect]
     Active Substance: ETHINYL ESTRADIOL\ETONOGESTREL
     Indication: MENSTRUAL CYCLE MANAGEMENT
     Dosage: 1 RING FOR EVERY 3 WEEKS THEN RING FREE FOR 1 WEEK
     Route: 067
     Dates: start: 20200628

REACTIONS (9)
  - Diarrhoea [Not Recovered/Not Resolved]
  - Product use in unapproved indication [Unknown]
  - Hyperhidrosis [Not Recovered/Not Resolved]
  - Product quality issue [Unknown]
  - Poor quality device used [Unknown]
  - Vaginal disorder [Not Recovered/Not Resolved]
  - Medical device site discomfort [Unknown]
  - Medical device site pain [Unknown]
  - Device expulsion [Unknown]

NARRATIVE: CASE EVENT DATE: 20200628
